FAERS Safety Report 5050398-9 (Version None)
Quarter: 2006Q3

REPORT INFORMATION
  Report Type: 
  Country: None (occurrence: None)
  Receive Date: 20060707
  Receipt Date: 20060626
  Transmission Date: 20061208
  Serious: No
  Sender: FDA-Public Use
  Company Number: 2006-144766-NL

PATIENT
  Age: 45 Year
  Sex: Male

DRUGS (12)
  1. MIRTAZAPINE [Suspect]
     Dosage: 15 MG/30 MG/45 MG
     Route: 048
     Dates: start: 20051018, end: 20051130
  2. MIRTAZAPINE [Suspect]
     Dosage: 15 MG/30 MG/45 MG
     Route: 048
     Dates: start: 20051017
  3. MIRTAZAPINE [Suspect]
     Dosage: 15 MG/30 MG/45 MG
     Route: 048
     Dates: start: 20051201
  4. SETRALINE HCL [Suspect]
     Dosage: 50 MG/100 MG/150 MG
     Route: 048
     Dates: start: 20051025, end: 20051121
  5. SETRALINE HCL [Suspect]
     Dosage: 50 MG/100 MG/150 MG
     Route: 048
     Dates: start: 20051122, end: 20051123
  6. SETRALINE HCL [Suspect]
     Dosage: 50 MG/100 MG/150 MG
     Route: 048
     Dates: start: 20051124, end: 20060116
  7. VENLAFAXINE HCL [Suspect]
     Dosage: 75 MG
     Route: 048
     Dates: start: 20050117
  8. PROMETHAZINE [Suspect]
     Dosage: 100 MG
     Route: 048
     Dates: start: 20060116, end: 20060117
  9. ACETYLSALICYLIC ACID SRT [Concomitant]
  10. AMUSULPRIDE [Concomitant]
  11. LORAZEPAM [Concomitant]
  12. FLURAZEPAM [Concomitant]

REACTIONS (9)
  - DRUG INTERACTION [None]
  - HEADACHE [None]
  - MUSCULAR WEAKNESS [None]
  - OBSTRUCTION [None]
  - SENSORY DISTURBANCE [None]
  - SEROTONIN SYNDROME [None]
  - SINUS TACHYCARDIA [None]
  - VERTIGO [None]
  - VISUAL DISTURBANCE [None]
